FAERS Safety Report 5101268-9 (Version None)
Quarter: 2006Q3

REPORT INFORMATION
  Report Type: 
  Country: None (occurrence: None)
  Receive Date: 20060911
  Receipt Date: 20060905
  Transmission Date: 20061208
  Serious: Yes (Hospitalization)
  Sender: FDA-Public Use
  Company Number: FR-AVENTIS-200613085FR

PATIENT
  Age: 63 Year
  Sex: Male

DRUGS (3)
  1. LOVENOX [Suspect]
     Indication: THROMBOSIS PROPHYLAXIS
     Route: 058
     Dates: start: 20060301
  2. CIFLOX [Suspect]
     Route: 048
     Dates: start: 20060506, end: 20060528
  3. TRIFLUCAN [Suspect]
     Route: 048
     Dates: start: 20060522, end: 20060524

REACTIONS (4)
  - RENAL DISORDER [None]
  - RENAL FAILURE ACUTE [None]
  - THROMBOCYTOPENIA [None]
  - URINARY TRACT INFECTION [None]
